FAERS Safety Report 5145503-X (Version None)
Quarter: 2006Q4

REPORT INFORMATION
  Report Type: 
  Country: None (occurrence: None)
  Receive Date: 20061101
  Receipt Date: 20061018
  Transmission Date: 20070319
  Serious: Yes (Hospitalization)
  Sender: FDA-Public Use
  Company Number: 231401

PATIENT
  Age: 64 Year
  Sex: Male
  Weight: 87.1 kg

DRUGS (2)
  1. AVASTIN [Suspect]
     Indication: RENAL CANCER METASTATIC
     Dosage: 905 MG, Q2W, INTRAVENOUS
     Route: 042
     Dates: start: 20060914, end: 20060928
  2. RAD001 (EVEROLIMUS) [Suspect]
     Indication: RENAL CANCER METASTATIC
     Dosage: 10 MG, QD, ORAL
     Route: 048
     Dates: start: 20060914, end: 20061011

REACTIONS (2)
  - HYPERTENSION [None]
  - LUNG ABSCESS [None]
